FAERS Safety Report 6921354-8 (Version None)
Quarter: 2010Q3

REPORT INFORMATION
  Report Type: 
  Country: None (occurrence: None)
  Receive Date: 20100812
  Receipt Date: 20100730
  Transmission Date: 20110219
  Serious: Yes (Other)
  Sender: FDA-Public Use
  Company Number: US-ELI_LILLY_AND_COMPANY-US201005001317

PATIENT
  Sex: Male

DRUGS (2)
  1. CYMBALTA [Suspect]
     Indication: MAJOR DEPRESSION
     Dosage: 60 MG, UNK
     Dates: start: 20070515, end: 20100424
  2. XANAX [Concomitant]
     Dosage: 2 MG, EACH EVENING

REACTIONS (2)
  - ANAL FISSURE [None]
  - CONSTIPATION [None]
